FAERS Safety Report 4771171-2 (Version None)
Quarter: 2005Q3

REPORT INFORMATION
  Report Type: 
  Country: None (occurrence: None)
  Receive Date: 20050914
  Receipt Date: 20050829
  Transmission Date: 20060218
  Serious: Yes (Death)
  Sender: FDA-Public Use
  Company Number: USA0508106809

PATIENT
  Age: 54 Year
  Sex: Male

DRUGS (2)
  1. SYMBYAX [Suspect]
     Dates: start: 20050805
  2. ATIVAN [Concomitant]

REACTIONS (1)
  - COMPLETED SUICIDE [None]
